FAERS Safety Report 7710805-7 (Version None)
Quarter: 2011Q3

REPORT INFORMATION
  Report Type: 
  Country: None (occurrence: None)
  Receive Date: 20110825
  Receipt Date: 20110806
  Transmission Date: 20111222
  Serious: Yes (Hospitalization)
  Sender: FDA-Public Use
  Company Number: US-AMGEN-USASP2011042434

PATIENT
  Sex: Male
  Weight: 3.3 kg

DRUGS (8)
  1. ZYRTEC [Concomitant]
     Dosage: UNK UNK, PRN
     Route: 064
  2. SINGULAIR [Concomitant]
     Dosage: 10 MG, UNK
     Route: 064
  3. METFORMIN HCL [Concomitant]
     Route: 064
  4. WELLBUTRIN [Concomitant]
     Dosage: UNK
     Route: 064
  5. ENBREL [Suspect]
     Dosage: 50 MG, QWK
     Route: 064
     Dates: start: 20090501, end: 20100101
  6. ENBREL [Suspect]
     Dosage: 50 MG, QWK
     Dates: start: 20110806
  7. FERROUS SULFATE TAB [Concomitant]
     Indication: ANAEMIA
     Route: 064
  8. VITAMINS                           /00067501/ [Concomitant]
     Dosage: UNK UNK, QD
     Route: 064

REACTIONS (1)
  - RESPIRATORY DISTRESS [None]
